FAERS Safety Report 20181470 (Version 1)
Quarter: 2021Q4

REPORT INFORMATION
  Report Type: Spontaneous
  Country: US (occurrence: None)
  Receive Date: 20211213
  Receipt Date: 20211213
  Transmission Date: 20220303
  Serious: Yes (Disabling)
  Sender: FDA-Public Use
  Company Number: None

PATIENT
  Age: 34 Year
  Sex: Female
  Weight: 49.5 kg

DRUGS (2)
  1. LORATADINE ODT [Suspect]
     Active Substance: LORATADINE
     Indication: Multiple allergies
     Dosage: OTHER QUANTITY : 1 TABLET(S);?FREQUENCY : AT BEDTIME;?
     Route: 048
     Dates: start: 20211130, end: 20211211
  2. ALBUTEROL [Concomitant]
     Active Substance: ALBUTEROL

REACTIONS (8)
  - Imprisonment [None]
  - Mental status changes [None]
  - Agitation [None]
  - Abnormal behaviour [None]
  - Anxiety [None]
  - Depression [None]
  - Anger [None]
  - Fear [None]

NARRATIVE: CASE EVENT DATE: 20211211
